FAERS Safety Report 10944525 (Version 1)
Quarter: 2020Q3

REPORT INFORMATION
  Report Type: Spontaneous
  Country: ES (occurrence: ES)
  Receive Date: 20150323
  Receipt Date: 20150323
  Transmission Date: 20201104
  Serious: Yes (Hospitalization)
  Sender: FDA-Public Use
  Company Number: ES-TEVA-549006ISR

PATIENT
  Age: 81 Year
  Sex: Female

DRUGS (9)
  1. TRAMADOL W/PARACETAMOL [Interacting]
     Active Substance: ACETAMINOPHEN\TRAMADOL
     Indication: BACK PAIN
     Dosage: ADMINISTERED FOR 1 MONTH
     Route: 065
  2. ESCITALOPRAM [Suspect]
     Active Substance: ESCITALOPRAM OXALATE
     Indication: DEPRESSION
     Dosage: ESCITALOPRAM 10 ADMINISTERED FOR 2 YEARS
     Route: 065
  3. OMEPRAZOLE. [Concomitant]
     Active Substance: OMEPRAZOLE
     Indication: PROPHYLAXIS AGAINST GASTROINTESTINAL ULCER
     Dosage: ADMINISTERED FOR 1 MONTH
     Route: 065
  4. DEFLAZACORT [Concomitant]
     Active Substance: DEFLAZACORT
     Indication: ASTHMA
     Dosage: ADMINISTERED FOR 5 YEARS
     Route: 065
  5. MONTELUKAST [Concomitant]
     Active Substance: MONTELUKAST SODIUM
     Indication: ASTHMA
     Dosage: ADMINISTERED FOR 5 YEARS
     Route: 065
  6. ETORICOXIB. [Interacting]
     Active Substance: ETORICOXIB
     Indication: BACK PAIN
     Dosage: ETORICOXIB 90; ADMINISTERED FOR 1 MONTH
     Route: 065
  7. ATORVASTATIN [Concomitant]
     Active Substance: ATORVASTATIN
     Indication: DYSLIPIDAEMIA
     Dosage: ADMINISTERED FOR 6 MONTHS
     Route: 065
  8. TRAMADOL. [Interacting]
     Active Substance: TRAMADOL
     Indication: BACK PAIN
     Dosage: ADMINISTERED FOR 1 MONTH
     Route: 065
  9. SALBUTAMOL [Concomitant]
     Active Substance: ALBUTEROL
     Indication: ASTHMA
     Dosage: ON DEMAND; ADMINISTERED FOR 5 YEARS
     Route: 065

REACTIONS (3)
  - Aphasia [Unknown]
  - Drug interaction [Unknown]
  - Hemianopia [Unknown]
